FAERS Safety Report 8273107-9 (Version None)
Quarter: 2012Q2

REPORT INFORMATION
  Report Type: 
  Country: None (occurrence: None)
  Receive Date: 20120411
  Receipt Date: 20120403
  Transmission Date: 20120825
  Serious: Yes (Hospitalization)
  Sender: FDA-Public Use
  Company Number: JP-VERTEX PHARMACEUTICALS INC.-AE-2012-004899

PATIENT
  Age: 67 Year
  Sex: Male

DRUGS (7)
  1. INTERFERON [Concomitant]
     Route: 058
     Dates: start: 20120221, end: 20120321
  2. RIBAVIRIN [Concomitant]
     Indication: HEPATITIS C
     Route: 048
     Dates: start: 20120207, end: 20120327
  3. EBASTINE [Concomitant]
     Route: 048
     Dates: start: 20120220
  4. XYZAL [Concomitant]
     Route: 048
  5. LENDORMIN [Concomitant]
     Route: 048
  6. TELAVIC (TELAPREVIR) [Suspect]
     Indication: HEPATITIS C
     Route: 048
     Dates: start: 20120207, end: 20120327
  7. INTERFERON [Concomitant]
     Indication: HEPATITIS C
     Route: 058
     Dates: start: 20120207, end: 20120214

REACTIONS (2)
  - RASH [None]
  - PYREXIA [None]
